FAERS Safety Report 12789824 (Version 1)
Quarter: 2016Q3

REPORT INFORMATION
  Report Type: Spontaneous
  Country: JP (occurrence: JP)
  Receive Date: 20160928
  Receipt Date: 20160928
  Transmission Date: 20161109
  Serious: Yes (Death)
  Sender: FDA-Public Use
  Company Number: JP-MALLINCKRODT-T201604526

PATIENT
  Age: 51 Year
  Sex: Female
  Weight: 44 kg

DRUGS (11)
  1. FENTOS [Concomitant]
     Active Substance: FENTANYL
     Dosage: 4 MG
     Route: 062
     Dates: start: 20150627, end: 20150704
  2. POTACOL-R [Concomitant]
     Dosage: 96 ML
     Route: 051
     Dates: start: 20150627, end: 20150629
  3. FENTOS [Concomitant]
     Active Substance: FENTANYL
     Indication: ANALGESIC THERAPY
     Dosage: 10 MG
     Route: 062
     Dates: end: 20150626
  4. METHADONE [Suspect]
     Active Substance: METHADONE HYDROCHLORIDE
     Dosage: 15 MG (45 MG DAILY DOSE)
     Route: 048
     Dates: start: 20150703, end: 20150704
  5. ANAPEINE [Concomitant]
     Active Substance: ROPIVACAINE HYDROCHLORIDE
     Indication: ANALGESIC THERAPY
     Dosage: 96 ML
     Route: 008
     Dates: end: 20150704
  6. OXIFAST [Concomitant]
     Active Substance: OXYCODONE
     Dosage: 24 MG
     Route: 058
     Dates: end: 20150704
  7. TRAVELMIN [Concomitant]
     Active Substance: DIMENHYDRINATE
     Dosage: 3 DF
     Route: 048
     Dates: end: 20150704
  8. PREDNISOLONE. [Concomitant]
     Active Substance: PREDNISOLONE
     Dosage: 3 MG
     Route: 048
     Dates: end: 20150704
  9. METHADONE [Suspect]
     Active Substance: METHADONE HYDROCHLORIDE
     Indication: CANCER PAIN
     Dosage: 10 MG (30 MG DAILY DOSE)
     Route: 048
     Dates: start: 20150626, end: 20150703
  10. OXIFAST [Concomitant]
     Active Substance: OXYCODONE
     Indication: ANALGESIC THERAPY
     Dosage: 1-10 MG, PRN
     Route: 051
     Dates: start: 20150626
  11. SERENACE [Concomitant]
     Active Substance: HALOPERIDOL
     Indication: SEDATION
     Dosage: 2.5 MG
     Route: 051
     Dates: start: 20150704, end: 20150704

REACTIONS (1)
  - Rectal cancer [Fatal]

NARRATIVE: CASE EVENT DATE: 20150704
